FAERS Safety Report 8351349-1 (Version None)
Quarter: 2012Q2

REPORT INFORMATION
  Report Type: 
  Country: None (occurrence: None)
  Receive Date: 20120510
  Receipt Date: 20120502
  Transmission Date: 20120825
  Serious: Yes (Hospitalization)
  Sender: FDA-Public Use
  Company Number: FI-GILEAD-2012-0054728

PATIENT
  Sex: Female

DRUGS (7)
  1. TRUVADA [Suspect]
     Indication: HIV INFECTION
     Dosage: UNK
     Dates: start: 20091201, end: 20120207
  2. COMBIVIR [Concomitant]
     Indication: HIV INFECTION
     Dosage: UNK
     Dates: start: 20120216
  3. MOXIFLOXACIN [Concomitant]
     Indication: ANTIBIOTIC THERAPY
     Dosage: 400 MG, UNK
     Route: 048
     Dates: start: 20120208
  4. OBSIDAN                            /00023514/ [Concomitant]
     Indication: ANAEMIA
     Route: 048
  5. VITAMIN D [Concomitant]
     Indication: PROPHYLAXIS
     Route: 048
  6. ATZ/R [Concomitant]
     Indication: HIV INFECTION
     Dosage: UNK
     Dates: start: 20091201
  7. CEFUROXIM                          /00454602/ [Concomitant]
     Indication: ANTIBIOTIC THERAPY
     Dosage: 1.5 G, UNK
     Route: 042
     Dates: start: 20120202, end: 20120208

REACTIONS (4)
  - RENAL TUBULAR ACIDOSIS [None]
  - OROPHARYNGEAL PAIN [None]
  - METABOLIC ACIDOSIS [None]
  - TONSILLITIS STREPTOCOCCAL [None]
